FAERS Safety Report 8881478 (Version 1)
Quarter: 2012Q4

REPORT INFORMATION
  Report Type: Report from Study
  Country: US (occurrence: US)
  Receive Date: 20121102
  Receipt Date: 20121102
  Transmission Date: 20130627
  Serious: Yes (Hospitalization, Other)
  Sender: FDA-Public Use
  Company Number: US-ABBOTT-12P-163-1001540-00

PATIENT
  Age: 28 None

DRUGS (11)
  1. HUMIRA [Suspect]
     Indication: CROHN^S DISEASE
  2. VANCOMYCIN [Suspect]
     Indication: POSTOPERATIVE WOUND INFECTION
  3. 6-MP [Concomitant]
     Indication: PRODUCT USED FOR UNKNOWN INDICATION
  4. INTEGRA PLUS [Concomitant]
     Indication: MINERAL SUPPLEMENTATION
  5. PREDNISONE [Concomitant]
     Indication: CROHN^S DISEASE
  6. AMBIEN [Concomitant]
     Indication: SLEEP DISORDER
  7. CELEXA [Concomitant]
     Indication: DEPRESSION
  8. PHENERGAN [Concomitant]
     Indication: CROHN^S DISEASE
  9. IBUPROFEN [Concomitant]
     Indication: CROHN^S DISEASE
  10. PREFERRED PLUS [Concomitant]
     Indication: VITAMIN SUPPLEMENTATION
  11. DIFLUCAN [Concomitant]
     Indication: FUNGAL INFECTION

REACTIONS (10)
  - Gestational diabetes [Not Recovered/Not Resolved]
  - Crohn^s disease [Recovered/Resolved]
  - Premature labour [Recovered/Resolved]
  - Abdominal pain [Recovering/Resolving]
  - Diarrhoea [Recovered/Resolved]
  - Vomiting [Recovered/Resolved]
  - Postoperative wound infection [Recovering/Resolving]
  - Toxicity to various agents [Recovered/Resolved]
  - Premature rupture of membranes [Recovered/Resolved]
  - Vomiting [Recovered/Resolved]
